FAERS Safety Report 11086731 (Version 1)
Quarter: 2015Q2

REPORT INFORMATION
  Report Type: Spontaneous
  Country: US (occurrence: US)
  Receive Date: 20150504
  Receipt Date: 20150504
  Transmission Date: 20150821
  Serious: Yes (Hospitalization, Other)
  Sender: FDA-Public Use
  Company Number: US-SUN PHARMACEUTICAL INDUSTRIES LTD-2015US-96680

PATIENT
  Age: 78 Year
  Sex: Female

DRUGS (1)
  1. ALPRAZOLAM. [Suspect]
     Active Substance: ALPRAZOLAM
     Indication: DEPRESSION
     Dosage: 0.5 MG, TID
     Route: 065

REACTIONS (4)
  - Hypertensive crisis [Recovered/Resolved]
  - Withdrawal syndrome [Recovered/Resolved]
  - Mental status changes [Recovered/Resolved]
  - Catatonia [Recovered/Resolved]
